FAERS Safety Report 24832333 (Version 2)
Quarter: 2025Q1

REPORT INFORMATION
  Report Type: Spontaneous
  Country: US (occurrence: US)
  Receive Date: 20250110
  Receipt Date: 20250124
  Transmission Date: 20250408
  Serious: Yes (Hospitalization)
  Sender: TEVA
  Company Number: US-TEVA-VS-3284329

PATIENT
  Age: 36 Year
  Sex: Female

DRUGS (3)
  1. CAPECITABINE [Suspect]
     Active Substance: CAPECITABINE
     Indication: Invasive ductal breast carcinoma
     Route: 065
  2. PEMBROLIZUMAB [Concomitant]
     Active Substance: PEMBROLIZUMAB
     Indication: Invasive ductal breast carcinoma
     Route: 065
  3. CARBOPLATIN [Concomitant]
     Active Substance: CARBOPLATIN
     Indication: Invasive ductal breast carcinoma

REACTIONS (2)
  - Hypertriglyceridaemia [Recovered/Resolved]
  - Pancreatitis [Recovering/Resolving]
